FAERS Safety Report 9989564 (Version 1)
Quarter: 2014Q1

REPORT INFORMATION
  Report Type: Spontaneous
  Country: US (occurrence: US)
  Receive Date: 20140310
  Receipt Date: 20140310
  Transmission Date: 20141002
  Serious: No
  Sender: FDA-Public Use
  Company Number: US-ABBVIE-13P-163-1136805-00

PATIENT
  Sex: Female
  Weight: 64.47 kg

DRUGS (20)
  1. HUMIRA [Suspect]
     Indication: PRODUCT USED FOR UNKNOWN INDICATION
     Dates: start: 20130718
  2. UNIFILIN [Concomitant]
     Indication: ASTHMA
  3. UNIFILIN [Concomitant]
     Indication: CHRONIC OBSTRUCTIVE PULMONARY DISEASE
  4. PHENERGAN [Concomitant]
     Indication: NAUSEA
  5. SEROQUEL [Concomitant]
     Indication: INSOMNIA
  6. GABAPENTIN [Concomitant]
     Indication: NERVE INJURY
  7. PLAVIX [Concomitant]
     Indication: CEREBROVASCULAR ACCIDENT
  8. TOPROL [Concomitant]
     Indication: HYPERTENSION
  9. TRILIPEX [Concomitant]
     Indication: BLOOD CHOLESTEROL INCREASED
  10. CLOBETASOL [Concomitant]
     Indication: PSORIASIS
  11. KEPPRA [Concomitant]
     Indication: CONVULSION
  12. ARTHROTEX [Concomitant]
     Indication: ARTHRITIS
  13. LASIX [Concomitant]
     Indication: PRODUCT USED FOR UNKNOWN INDICATION
     Dosage: AS NEEDED
  14. PROAIR [Concomitant]
     Indication: INHALATION THERAPY
  15. REQUIP [Concomitant]
     Indication: RESTLESS LEGS SYNDROME
  16. OXYGEN [Concomitant]
     Indication: DYSPNOEA
     Dosage: AS NEEDED WITH ACTIVITY
     Route: 045
  17. SOMA [Concomitant]
     Indication: MYALGIA
  18. SOMA [Concomitant]
     Indication: FIBROMYALGIA
  19. FENTANYL PATCH [Concomitant]
     Indication: PAIN
  20. OXYCODONE [Concomitant]
     Indication: PAIN

REACTIONS (1)
  - Injection site pain [Not Recovered/Not Resolved]
